FAERS Safety Report 21253899 (Version 3)
Quarter: 2022Q4

REPORT INFORMATION
  Report Type: Spontaneous
  Country: JP (occurrence: JP)
  Receive Date: 20220825
  Receipt Date: 20221223
  Transmission Date: 20230113
  Serious: Yes (Hospitalization, Other)
  Sender: FDA-Public Use
  Company Number: JP-UNITED THERAPEUTICS-UNT-2022-019221

PATIENT
  Age: 3 Year
  Sex: Male
  Weight: 10.7 kg

DRUGS (8)
  1. UNITUXIN [Suspect]
     Active Substance: DINUTUXIMAB
     Indication: Neuroblastoma
     Dosage: 9.1 MG, CYCLICAL (CYCLE 1)
     Route: 041
     Dates: start: 20220725, end: 20220728
  2. CALCIUM CHLORIDE\DEXTROSE\POTASSIUM CHLORIDE\SODIUM CHLORIDE [Suspect]
     Active Substance: CALCIUM CHLORIDE\DEXTROSE\POTASSIUM CHLORIDE\SODIUM CHLORIDE
     Indication: Fluid replacement
     Dosage: 500 MILLILITER
     Route: 041
     Dates: start: 20220722, end: 20220802
  3. FILGRASTIM [Concomitant]
     Active Substance: FILGRASTIM
     Indication: Therapeutic response increased
     Dosage: 50 MICROGRAM/DAY
     Route: 058
     Dates: start: 20220722, end: 20220804
  4. ISOTONIC SODIUM CHLORIDE SOLUTION [Concomitant]
     Active Substance: SODIUM CHLORIDE
     Indication: Prophylaxis
     Dosage: 110 MILLILITER/DAY
     Route: 041
     Dates: start: 20220725, end: 20220728
  5. HYDROXYZINE HYDROCHLORIDE [Concomitant]
     Active Substance: HYDROXYZINE HYDROCHLORIDE
     Indication: Prophylaxis
     Dosage: 44 MILLIGRAM/DAY
     Route: 042
     Dates: start: 20220725, end: 20220729
  6. ACETAMINOPHEN [Concomitant]
     Active Substance: ACETAMINOPHEN
     Indication: Prophylaxis
     Dosage: 440 MILLIGRAM/DAY
     Route: 041
     Dates: start: 20220725, end: 20220729
  7. MORPHINE [Concomitant]
     Active Substance: MORPHINE
     Indication: Prophylaxis
     Dosage: 4.8 MILLIGRAM/DAY
     Route: 041
     Dates: start: 20220725, end: 20220729
  8. ACYCLOVIR [Concomitant]
     Active Substance: ACYCLOVIR
     Indication: Prophylaxis
     Dosage: 110 MILLIGRAM/DAY
     Route: 048
     Dates: start: 20220713, end: 20221103

REACTIONS (12)
  - Pulmonary hypertension [Recovered/Resolved]
  - Hypoxia [Recovered/Resolved]
  - Pericardial effusion [Recovered/Resolved]
  - Pain [Recovered/Resolved]
  - Decreased appetite [Recovered/Resolved]
  - Photophobia [Recovered/Resolved]
  - Pyrexia [Recovered/Resolved]
  - Face oedema [Recovered/Resolved]
  - Hypoalbuminaemia [Recovered/Resolved]
  - Urine output decreased [Unknown]
  - Pleural effusion [Unknown]
  - Hepatic function abnormal [Recovered/Resolved]

NARRATIVE: CASE EVENT DATE: 20220725
